FAERS Safety Report 5694813-6 (Version None)
Quarter: 2008Q2

REPORT INFORMATION
  Report Type: 
  Country: None (occurrence: None)
  Receive Date: 20080404
  Receipt Date: 20080327
  Transmission Date: 20081010
  Serious: No
  Sender: FDA-Public Use
  Company Number: GB-MERCK-0706GBR00101M

PATIENT
  Age: 33 Year
  Sex: Female

DRUGS (2)
  1. SINGULAIR [Suspect]
     Route: 048
     Dates: start: 20010401, end: 20030301
  2. FEXOFENADINE HYDROCHLORIDE [Concomitant]
     Route: 065

REACTIONS (3)
  - DRUG EXPOSURE DURING PREGNANCY [None]
  - PRE-ECLAMPSIA [None]
  - WRONG TECHNIQUE IN DRUG USAGE PROCESS [None]
